FAERS Safety Report 7482079-6 (Version None)
Quarter: 2011Q2

REPORT INFORMATION
  Report Type: 
  Country: None (occurrence: None)
  Receive Date: 20110516
  Receipt Date: 20110511
  Transmission Date: 20111010
  Serious: Yes (Death, Other)
  Sender: FDA-Public Use
  Company Number: PHHY2011FR40153

PATIENT
  Age: 50 Year
  Sex: Male

DRUGS (2)
  1. CORTICOSTEROID NOS [Suspect]
     Dosage: UNK UKN, UNK
  2. MYCOPHENOLATE MOFETIL [Suspect]
     Dosage: UNK UKN, UNK

REACTIONS (16)
  - BILE DUCT STENOSIS [None]
  - JAUNDICE [None]
  - BILIARY CAST SYNDROME [None]
  - CHOLANGITIS [None]
  - BILE DUCT OBSTRUCTION [None]
  - HAEMOTHORAX [None]
  - HEPATITIS C [None]
  - HEPATITIS CHRONIC ACTIVE [None]
  - ANAEMIA [None]
  - SEPSIS [None]
  - VASCULAR OCCLUSION [None]
  - HEPATIC FAILURE [None]
  - BILIARY DILATATION [None]
  - HEPATIC ARTERY THROMBOSIS [None]
  - MULTI-ORGAN FAILURE [None]
  - NEUROTOXICITY [None]
